FAERS Safety Report 17280751 (Version 1)
Quarter: 2020Q1

REPORT INFORMATION
  Report Type: Spontaneous
  Country: JP (occurrence: JP)
  Receive Date: 20200117
  Receipt Date: 20200117
  Transmission Date: 20200409
  Serious: Yes (Life-Threatening, Hospitalization, Other)
  Sender: FDA-Public Use
  Company Number: JP-MACLEODS PHARMACEUTICALS US LTD-MAC2019024687

PATIENT

DRUGS (1)
  1. METFORMIN [Suspect]
     Active Substance: METFORMIN HYDROCHLORIDE
     Indication: TYPE 2 DIABETES MELLITUS
     Dosage: 1000 MILLIGRAM, QD, MORE THAN 3 YEARS WITHOUT CHANGING THE DOSAGE
     Route: 065

REACTIONS (3)
  - Drug level increased [Recovered/Resolved]
  - Renal injury [Recovered/Resolved]
  - Lactic acidosis [Recovered/Resolved]
